FAERS Safety Report 8299114-8 (Version None)
Quarter: 2012Q2

REPORT INFORMATION
  Report Type: 
  Country: None (occurrence: None)
  Receive Date: 20120419
  Receipt Date: 20120410
  Transmission Date: 20120825
  Serious: Yes (Other)
  Sender: FDA-Public Use
  Company Number: GB-ALEXION PHARMACEUTICALS INC.-A201200690

PATIENT
  Sex: Female

DRUGS (10)
  1. SOLIRIS [Suspect]
     Indication: PAROXYSMAL NOCTURNAL HAEMOGLOBINURIA
     Dosage: 600 MG, QW
     Route: 042
     Dates: start: 20120319
  2. NICORANDIL [Concomitant]
     Indication: MYOCARDIAL ISCHAEMIA
     Dosage: 20 MG, BID
     Route: 048
     Dates: start: 20090101
  3. TRANEXAMIC ACID [Concomitant]
     Dosage: UNK, PRN
  4. VALSARTAN [Concomitant]
     Indication: MYOCARDIAL ISCHAEMIA
     Dosage: 160 MG, BID
     Route: 048
     Dates: start: 20090101
  5. EXJADE [Concomitant]
     Indication: IRON OVERLOAD
     Dosage: 1.5 G, BID
     Route: 048
     Dates: start: 20090101
  6. BISOPROLOL FUMARATE [Concomitant]
     Indication: HYPERTENSION
  7. FUROSEMIDE [Concomitant]
     Dosage: UNK, PRN
  8. CYCLOSPORINE [Concomitant]
     Indication: APLASTIC ANAEMIA
     Dosage: 25 MG, UNK
     Route: 048
     Dates: start: 20070101
  9. BISOPROLOL FUMARATE [Concomitant]
     Indication: MYOCARDIAL ISCHAEMIA
     Dosage: 10 MG, UNK
     Route: 048
     Dates: start: 20090101
  10. VALSARTAN [Concomitant]
     Indication: HYPERTENSION

REACTIONS (6)
  - PHOTOSENSITIVITY REACTION [None]
  - RASH MACULAR [None]
  - PAIN OF SKIN [None]
  - PRURITUS [None]
  - FACE OEDEMA [None]
  - PARAESTHESIA [None]
